FAERS Safety Report 8367025-5 (Version None)
Quarter: 2012Q2

REPORT INFORMATION
  Report Type: 
  Country: None (occurrence: None)
  Receive Date: 20120515
  Receipt Date: 20120515
  Transmission Date: 20120825
  Serious: No
  Sender: FDA-Public Use
  Company Number: None

PATIENT
  Age: 4 Year
  Sex: Female

DRUGS (5)
  1. CARBAMAZEPINE [Suspect]
     Dates: start: 20100301, end: 20110321
  2. VITAMIN K TAB [Concomitant]
  3. LACTULOSE [Concomitant]
  4. ACETYLCYSTEINE [Concomitant]
  5. LEVETIRACETAM [Concomitant]

REACTIONS (18)
  - VOMITING [None]
  - BILIRUBIN CONJUGATED INCREASED [None]
  - EPSTEIN-BARR VIRUS ANTIBODY POSITIVE [None]
  - DECREASED APPETITE [None]
  - JAUNDICE [None]
  - VIRAL INFECTION [None]
  - INCORRECT DOSE ADMINISTERED [None]
  - TOXICITY TO VARIOUS AGENTS [None]
  - PLATELET COUNT DECREASED [None]
  - HEPATIC ISCHAEMIA [None]
  - HEPATITIS E [None]
  - BLOOD ALKALINE PHOSPHATASE INCREASED [None]
  - BLOOD BILIRUBIN INCREASED [None]
  - INTERNATIONAL NORMALISED RATIO INCREASED [None]
  - ALANINE AMINOTRANSFERASE INCREASED [None]
  - LETHARGY [None]
  - ASPARTATE AMINOTRANSFERASE INCREASED [None]
  - LIVER INJURY [None]
